FAERS Safety Report 5832428-7 (Version None)
Quarter: 2008Q3

REPORT INFORMATION
  Report Type: 
  Country: None (occurrence: None)
  Receive Date: 20080730
  Receipt Date: 20080520
  Transmission Date: 20090109
  Serious: Yes (Other)
  Sender: FDA-Public Use
  Company Number: OSCN-PR-0701L-0032

PATIENT
  Age: 31 Year
  Sex: Female
  Weight: 55 kg

DRUGS (2)
  1. OMNISCAN [Suspect]
     Indication: ARTERIOVENOUS SHUNT OPERATION
     Dosage: 40 ML, SINGLE DOSE, I.V.
     Route: 042
     Dates: start: 20060417, end: 20060417
  2. FK506 [Concomitant]

REACTIONS (7)
  - CAESAREAN SECTION [None]
  - CONTINUOUS HAEMODIAFILTRATION [None]
  - DRUG EXPOSURE BEFORE PREGNANCY [None]
  - MENSTRUATION IRREGULAR [None]
  - NEPHROGENIC SYSTEMIC FIBROSIS [None]
  - OLIGOHYDRAMNIOS [None]
  - STAPHYLOCOCCAL BACTERAEMIA [None]
